FAERS Safety Report 19891341 (Version 2)
Quarter: 2021Q4

REPORT INFORMATION
  Report Type: Report from Study
  Country: IN (occurrence: IN)
  Receive Date: 20210927
  Receipt Date: 20211009
  Transmission Date: 20220304
  Serious: Yes (Hospitalization, Other)
  Sender: FDA-Public Use
  Company Number: NVSC2021IN213713

PATIENT
  Age: 54 Year
  Sex: Female

DRUGS (6)
  1. KISQALI [Suspect]
     Active Substance: RIBOCICLIB
     Indication: Breast cancer metastatic
     Dosage: 600 MG, QD
     Route: 048
     Dates: start: 20180308, end: 20210824
  2. LETROZOLE [Concomitant]
     Active Substance: LETROZOLE
     Indication: Endocrine disorder
     Dosage: 2.5 MG
     Route: 065
     Dates: start: 20210720, end: 20210824
  3. LETROZOLE [Concomitant]
     Active Substance: LETROZOLE
     Dosage: UNK
     Route: 065
     Dates: start: 20210720, end: 20210815
  4. ZOLEDRONIC ACID [Concomitant]
     Active Substance: ZOLEDRONIC ACID
     Indication: Metastases to bone
     Dosage: 4 MG
     Route: 065
     Dates: start: 20180308, end: 20210720
  5. CALCIUM CARBONATE\CHOLECALCIFEROL [Concomitant]
     Active Substance: CALCIUM CARBONATE\CHOLECALCIFEROL
     Indication: Metastases to bone
     Dosage: 500 MG
     Route: 065
     Dates: start: 20180604, end: 20210916
  6. OLMY [Concomitant]
     Indication: Hypertension
     Dosage: 10 MG
     Route: 065
     Dates: start: 20190327, end: 20210915

REACTIONS (5)
  - Febrile neutropenia [Recovered/Resolved]
  - Pyrexia [Recovering/Resolving]
  - Neutropenia [Unknown]
  - Thrombocytopenia [Unknown]
  - Pruritus [Unknown]

NARRATIVE: CASE EVENT DATE: 20210916
